FAERS Safety Report 10895756 (Version 1)
Quarter: 2015Q1

REPORT INFORMATION
  Report Type: Spontaneous
  Country: GB (occurrence: GB)
  Receive Date: 20150307
  Receipt Date: 20150307
  Transmission Date: 20150721
  Serious: Yes (Disabling)
  Sender: FDA-Public Use
  Company Number: GB-ACCORD-028976

PATIENT
  Age: 76 Year
  Sex: Male
  Weight: 70 kg

DRUGS (7)
  1. CLOPIDOGREL [Concomitant]
     Active Substance: CLOPIDOGREL BISULFATE
     Dates: start: 20150203
  2. BISOPROLOL [Concomitant]
     Active Substance: BISOPROLOL
     Dates: start: 20150203, end: 20150204
  3. SERTRALINE [Suspect]
     Active Substance: SERTRALINE HYDROCHLORIDE
     Indication: PRODUCT USED FOR UNKNOWN INDICATION
     Dates: start: 20150119
  4. DIPROBASE [Concomitant]
     Active Substance: CHLOROCRESOL
     Dates: start: 20150203
  5. SIMVASTATIN. [Concomitant]
     Active Substance: SIMVASTATIN
     Dates: start: 20150203
  6. FENBID [Concomitant]
     Active Substance: IBUPROFEN
     Dates: start: 20150119, end: 20150120
  7. FUCIDIN [Concomitant]
     Active Substance: FUSIDIC ACID
     Dates: start: 20150203, end: 20150210

REACTIONS (2)
  - Dizziness [Unknown]
  - Feeling abnormal [Unknown]

NARRATIVE: CASE EVENT DATE: 20150216
